FAERS Safety Report 10069190 (Version 2)
Quarter: 2014Q2

REPORT INFORMATION
  Report Type: Spontaneous
  Country: US (occurrence: US)
  Receive Date: 20140409
  Receipt Date: 20140409
  Transmission Date: 20141212
  Serious: No
  Sender: FDA-Public Use
  Company Number: US-ASTELLAS-2014US000263

PATIENT
  Age: 23 Year
  Sex: Male
  Weight: 63 kg

DRUGS (2)
  1. PROTOPIC [Suspect]
     Indication: DRY SKIN
     Dosage: 0.1 %, 2-5 TIMES A DAY FOR 30DAYS
     Route: 061
     Dates: start: 20131220, end: 20140104
  2. PROTOPIC [Suspect]
     Indication: ECZEMA ASTEATOTIC

REACTIONS (3)
  - Off label use [Unknown]
  - Wound [Recovered/Resolved]
  - Skin fissures [Recovered/Resolved]
